APPROVED DRUG PRODUCT: IXEMPRA KIT
Active Ingredient: IXABEPILONE
Strength: 15MG/VIAL
Dosage Form/Route: INJECTABLE;INTRAVENOUS
Application: N022065 | Product #001
Applicant: R-PHARM US LLC
Approved: Oct 16, 2007 | RLD: Yes | RS: Yes | Type: RX